FAERS Safety Report 18646470 (Version 1)
Quarter: 2020Q4

REPORT INFORMATION
  Report Type: Spontaneous
  Country: AU (occurrence: AU)
  Receive Date: 20201222
  Receipt Date: 20201222
  Transmission Date: 20210114
  Serious: Yes (Other)
  Sender: FDA-Public Use
  Company Number: AU-TEVA-2020-AU-1861028

PATIENT
  Sex: Female

DRUGS (8)
  1. POSACONAZOLE [Concomitant]
     Active Substance: POSACONAZOLE
     Indication: ANTIFUNGAL PROPHYLAXIS
     Route: 065
  2. FLUDARABINE [Suspect]
     Active Substance: FLUDARABINE PHOSPHATE
     Indication: T-CELL TYPE ACUTE LEUKAEMIA
     Dosage: FLAG REGIMEN
     Route: 065
  3. XELJANZ [Suspect]
     Active Substance: TOFACITINIB CITRATE
     Indication: T-CELL TYPE ACUTE LEUKAEMIA
     Dosage: 10 MILLIGRAM DAILY; TOFACITINIB WAS COMMENCED ON DAY 17 POST-FLAG AND CEASED FROM DAY 36 POST-FLAG
     Route: 065
  4. DEXAMETHASONE. [Concomitant]
     Active Substance: DEXAMETHASONE
     Indication: T-CELL TYPE ACUTE LEUKAEMIA
     Route: 048
  5. CYTARABINE. [Suspect]
     Active Substance: CYTARABINE
     Indication: T-CELL TYPE ACUTE LEUKAEMIA
     Dosage: FLAG REGIMEN
     Route: 065
  6. AZACITIDINE. [Concomitant]
     Active Substance: AZACITIDINE
     Indication: T-CELL TYPE ACUTE LEUKAEMIA
     Route: 065
  7. FILGRASTIM [Suspect]
     Active Substance: FILGRASTIM
     Indication: T-CELL TYPE ACUTE LEUKAEMIA
     Dosage: FLAG REGIMEN
     Route: 065
  8. VENETOCLAX. [Suspect]
     Active Substance: VENETOCLAX
     Indication: T-CELL TYPE ACUTE LEUKAEMIA
     Dosage: 100 MILLIGRAM DAILY;
     Route: 065

REACTIONS (4)
  - Treatment failure [Unknown]
  - Urinary tract infection [Unknown]
  - Off label use [Unknown]
  - Febrile neutropenia [Not Recovered/Not Resolved]
